FAERS Safety Report 7716915-2 (Version None)
Quarter: 2011Q3

REPORT INFORMATION
  Report Type: 
  Country: None (occurrence: None)
  Receive Date: 20110829
  Receipt Date: 20110819
  Transmission Date: 20111222
  Serious: Yes (Other)
  Sender: FDA-Public Use
  Company Number: US-ASTRAZENECA-2007UW16240

PATIENT
  Age: 81 Year
  Sex: Female
  Weight: 95.3 kg

DRUGS (3)
  1. OMEPRAZOLE [Concomitant]
  2. NEXIUM [Suspect]
     Route: 048
  3. ARIMIDEX [Suspect]
     Indication: BREAST CANCER STAGE II
     Route: 048
     Dates: start: 20070101

REACTIONS (7)
  - SKIN DISCOLOURATION [None]
  - ALOPECIA [None]
  - ARTHRITIS [None]
  - ANXIETY [None]
  - HYPERHIDROSIS [None]
  - DRUG DOSE OMISSION [None]
  - OESOPHAGEAL CARCINOMA RECURRENT [None]
